FAERS Safety Report 6687005-5 (Version None)
Quarter: 2010Q2

REPORT INFORMATION
  Report Type: 
  Country: None (occurrence: None)
  Receive Date: 20100419
  Receipt Date: 20100407
  Transmission Date: 20101027
  Serious: Yes (Hospitalization)
  Sender: FDA-Public Use
  Company Number: KR-PFIZER INC-2010038473

PATIENT
  Age: 77 Year
  Sex: Male
  Weight: 71 kg

DRUGS (3)
  1. SUTENE [Suspect]
     Indication: SMALL CELL LUNG CANCER STAGE UNSPECIFIED
     Dosage: 50 MG, 1X/DAY, D1 - D28, EVERY 6 WEEKS
     Route: 048
     Dates: start: 20091125, end: 20091216
  2. SUTENE [Suspect]
     Dosage: 37.5 MG, UNK, D1 - D28, EVERY 6 WEEKS
     Route: 048
     Dates: start: 20100106, end: 20100323
  3. AMLODIPINE [Concomitant]
     Indication: HYPERTENSION
     Dosage: UNK
     Route: 048
     Dates: end: 20100323

REACTIONS (4)
  - ATRIOVENTRICULAR BLOCK COMPLETE [None]
  - ATRIOVENTRICULAR BLOCK FIRST DEGREE [None]
  - HYPERTENSION [None]
  - THROMBOCYTOPENIA [None]
